FAERS Safety Report 7993170-X (Version None)
Quarter: 2011Q4

REPORT INFORMATION
  Report Type: 
  Country: None (occurrence: None)
  Receive Date: 20111219
  Receipt Date: 20101021
  Transmission Date: 20120403
  Serious: No
  Sender: FDA-Public Use
  Company Number: US-ASTRAZENECA-2005UW03223

PATIENT
  Age: 73 Year
  Sex: Male
  Weight: 77.1 kg

DRUGS (10)
  1. TOPROL-XL [Concomitant]
     Indication: CARDIAC OPERATION
     Route: 048
  2. CRESTOR [Suspect]
     Indication: BLOOD CHOLESTEROL INCREASED
     Route: 048
     Dates: start: 20040801, end: 20050316
  3. CRESTOR [Suspect]
     Route: 048
     Dates: start: 20100408
  4. MESTINON [Concomitant]
  5. FORTAMET [Concomitant]
     Indication: TYPE 2 DIABETES MELLITUS
  6. CRESTOR [Suspect]
     Route: 048
     Dates: start: 20050501, end: 20100404
  7. CRESTOR [Suspect]
     Route: 048
     Dates: start: 20050324, end: 20050329
  8. TRICOR [Concomitant]
     Indication: BLOOD TRIGLYCERIDES
  9. ASPIRIN [Concomitant]
     Indication: CARDIAC OPERATION
  10. HYZAAR [Concomitant]
     Indication: HYPERTENSION
     Dosage: 100/25 MG DAILY

REACTIONS (6)
  - MYASTHENIA GRAVIS [None]
  - EYELID PTOSIS [None]
  - SINUSITIS [None]
  - LOW DENSITY LIPOPROTEIN DECREASED [None]
  - HIGH DENSITY LIPOPROTEIN DECREASED [None]
  - HYPERGLYCAEMIA [None]
